FAERS Safety Report 17193808 (Version 5)
Quarter: 2021Q1

REPORT INFORMATION
  Report Type: Spontaneous
  Country: DE (occurrence: DE)
  Receive Date: 20191223
  Receipt Date: 20210316
  Transmission Date: 20210419
  Serious: Yes (Hospitalization)
  Sender: FDA-Public Use
  Company Number: DE-SAMSUNG BIOEPIS-SB-2019-38299

PATIENT
  Sex: Female

DRUGS (10)
  1. BENEPALI [Suspect]
     Active Substance: ETANERCEPT
     Indication: PRODUCT USED FOR UNKNOWN INDICATION
     Dosage: 50 MG, UNK
     Route: 065
     Dates: start: 201708
  2. ERELZI [Suspect]
     Active Substance: ETANERCEPT-SZZS
     Indication: RHEUMATOID ARTHRITIS
     Route: 058
     Dates: start: 201710
  3. BENEPALI [Suspect]
     Active Substance: ETANERCEPT
     Dosage: 50 MG, UNK
     Route: 065
     Dates: start: 201710
  4. METHOTREXATE. [Suspect]
     Active Substance: METHOTREXATE
     Route: 065
  5. ERELZI [Suspect]
     Active Substance: ETANERCEPT-SZZS
     Route: 058
     Dates: start: 20180706
  6. ERELZI [Suspect]
     Active Substance: ETANERCEPT-SZZS
     Route: 058
     Dates: start: 201710, end: 201802
  7. METHOTREXATE. [Suspect]
     Active Substance: METHOTREXATE
     Route: 065
     Dates: start: 20180706
  8. METHOTREXATE. [Suspect]
     Active Substance: METHOTREXATE
     Indication: PRODUCT USED FOR UNKNOWN INDICATION
     Route: 065
     Dates: start: 20170802
  9. METHOTREXATE. [Suspect]
     Active Substance: METHOTREXATE
     Route: 065
     Dates: start: 20171005
  10. METHOTREXATE. [Suspect]
     Active Substance: METHOTREXATE
     Route: 065
     Dates: start: 20180110

REACTIONS (12)
  - Rotator cuff syndrome [Not Recovered/Not Resolved]
  - Nasopharyngitis [Unknown]
  - Fibromyalgia [Recovered/Resolved]
  - Diverticulum intestinal [Unknown]
  - Allergic cough [Recovered/Resolved]
  - Abdominal pain lower [Recovered/Resolved]
  - Fall [Not Recovered/Not Resolved]
  - Angiocardiogram [Recovered/Resolved]
  - Upper respiratory tract infection [Not Recovered/Not Resolved]
  - Pain [Recovered/Resolved]
  - Arthralgia [Not Recovered/Not Resolved]
  - Haemorrhoids [Recovered/Resolved]

NARRATIVE: CASE EVENT DATE: 20171220
